FAERS Safety Report 9351360 (Version 1)
Quarter: 2013Q2

REPORT INFORMATION
  Report Type: Spontaneous
  Country: AT (occurrence: AT)
  Receive Date: 20130617
  Receipt Date: 20130617
  Transmission Date: 20140414
  Serious: Yes (Other)
  Sender: FDA-Public Use
  Company Number: AT-GE HEALTHCARE MEDICAL DIAGNOSTICS-OMPQ-NO-1306S-0730

PATIENT
  Age: 19 Year
  Sex: Male

DRUGS (2)
  1. ACCUPAQUE [Suspect]
     Indication: UROGRAM
     Route: 042
     Dates: start: 20130524, end: 20130524
  2. ACCUPAQUE [Suspect]
     Indication: DIAGNOSTIC PROCEDURE

REACTIONS (5)
  - Erythema [Recovered/Resolved]
  - Pruritus [Recovered/Resolved]
  - Retching [Recovered/Resolved]
  - Sensation of foreign body [Recovered/Resolved]
  - Feeling hot [Recovered/Resolved]
